FAERS Safety Report 7610903-2 (Version None)
Quarter: 2011Q3

REPORT INFORMATION
  Report Type: 
  Country: None (occurrence: None)
  Receive Date: 20110715
  Receipt Date: 20110707
  Transmission Date: 20111222
  Serious: Yes (Other)
  Sender: FDA-Public Use
  Company Number: US-BRISTOL-MYERS SQUIBB COMPANY-15880669

PATIENT
  Age: 60 Year
  Sex: Male

DRUGS (8)
  1. GLUCOPHAGE [Suspect]
  2. INSULIN ASPART [Concomitant]
  3. METFORMIN HCL [Concomitant]
  4. AMLODIPINE BESYLATE [Concomitant]
  5. GLICLAZIDE [Concomitant]
  6. PERINDOPRIL ERBUMINE + INDAPAMIDE [Concomitant]
     Dosage: 1DF=2MG/0.625MG
  7. ROSUVASTATIN CALCIUM [Concomitant]
  8. GLIMEPIRIDE [Concomitant]

REACTIONS (2)
  - HEPATIC STEATOSIS [None]
  - PANCREATITIS ACUTE [None]
